FAERS Safety Report 8666404 (Version 6)
Quarter: 2015Q3

REPORT INFORMATION
  Report Type: Other
  Country: JP (occurrence: JP)
  Receive Date: 20120716
  Receipt Date: 20150918
  Transmission Date: 20151125
  Serious: Yes (Death, Hospitalization, Disabling, Other)
  Sender: FDA-Public Use
  Company Number: JP-ACTELION-A-CH2012-68302

PATIENT
  Age: 12 Year
  Sex: Male
  Weight: 38 kg

DRUGS (13)
  1. AMIODARONE HYDROCHLORIDE. [Suspect]
     Active Substance: AMIODARONE HYDROCHLORIDE
     Dosage: 50 MG, BID
     Route: 048
     Dates: start: 20100203, end: 20100205
  2. TRACLEER [Suspect]
     Active Substance: BOSENTAN
     Indication: PULMONARY ARTERIAL HYPERTENSION
     Dosage: 31.25 MG, BID
     Route: 048
     Dates: start: 20090513, end: 20110602
  3. BERAPROST SODIUM [Concomitant]
     Active Substance: BERAPROST SODIUM
  4. FUROSEMIDE. [Concomitant]
     Active Substance: FUROSEMIDE
  5. GLYCYRRHIZIC ACID, AMMONIUM SALT [Concomitant]
  6. METHIONINUM [Concomitant]
  7. AMIODARONE HYDROCHLORIDE. [Suspect]
     Active Substance: AMIODARONE HYDROCHLORIDE
     Indication: SUPRAVENTRICULAR TACHYCARDIA
     Dosage: 100 MG, BID
     Route: 048
     Dates: start: 20100121, end: 20100202
  8. AMIODARONE HYDROCHLORIDE. [Suspect]
     Active Substance: AMIODARONE HYDROCHLORIDE
     Dosage: 100 MG, BID
     Route: 048
     Dates: start: 20110112
  9. GLYCINE. [Concomitant]
     Active Substance: GLYCINE
  10. TRACLEER [Suspect]
     Active Substance: BOSENTAN
     Dosage: 15.63 MG, BID
     Route: 048
     Dates: start: 20090415, end: 20090512
  11. SILDENAFIL CITRATE. [Concomitant]
     Active Substance: SILDENAFIL CITRATE
  12. SPIRONOLACTONE. [Concomitant]
     Active Substance: SPIRONOLACTONE
  13. URSODEOXYCHOLIC ACID [Concomitant]
     Active Substance: URSODIOL

REACTIONS (19)
  - Stem cell transplant [Unknown]
  - Supraventricular tachycardia [Recovered/Resolved]
  - Multi-organ failure [Fatal]
  - Right ventricular failure [Recovering/Resolving]
  - Hepatosplenomegaly [Fatal]
  - Epstein-Barr virus infection [Fatal]
  - Dermatitis allergic [Recovering/Resolving]
  - Aspartate aminotransferase increased [Unknown]
  - Pharyngitis [Recovered/Resolved]
  - Thrombocytopenic purpura [Recovered/Resolved]
  - Epstein-Barr virus test positive [Fatal]
  - Hepatic function abnormal [Unknown]
  - Concomitant disease progression [Unknown]
  - Abdominal pain [Unknown]
  - Alanine aminotransferase increased [Unknown]
  - Extrasystoles [Recovered/Resolved]
  - Septic shock [Fatal]
  - Coronary artery aneurysm [Not Recovered/Not Resolved]
  - Platelet count decreased [Recovered/Resolved]

NARRATIVE: CASE EVENT DATE: 20090415
